FAERS Safety Report 20426353 (Version 1)
Quarter: 2022Q1

REPORT INFORMATION
  Report Type: Spontaneous
  Country: JP (occurrence: JP)
  Receive Date: 20220204
  Receipt Date: 20220204
  Transmission Date: 20220423
  Serious: No
  Sender: FDA-Public Use
  Company Number: JP-TAKEDA-2021TJP035670

PATIENT
  Age: 76 Year
  Sex: Female

DRUGS (1)
  1. CABOMETYX [Suspect]
     Active Substance: CABOZANTINIB S-MALATE
     Indication: Hepatocellular carcinoma
     Dosage: 20 MILLIGRAM
     Route: 048
     Dates: start: 20210520, end: 20210528

REACTIONS (4)
  - Malaise [Unknown]
  - Palmar-plantar erythrodysaesthesia syndrome [Unknown]
  - Nausea [Recovered/Resolved]
  - Decreased appetite [Recovered/Resolved]

NARRATIVE: CASE EVENT DATE: 20210525
